FAERS Safety Report 17138447 (Version 1)
Quarter: 2019Q4

REPORT INFORMATION
  Report Type: Spontaneous
  Country: US (occurrence: US)
  Receive Date: 20191210
  Receipt Date: 20191210
  Transmission Date: 20200122
  Serious: Yes (Hospitalization)
  Sender: FDA-Public Use
  Company Number: None

PATIENT
  Age: 73 Year
  Sex: Female
  Weight: 60.75 kg

DRUGS (35)
  1. POLYETHYLENE GLYCOL 3350. [Suspect]
     Active Substance: POLYETHYLENE GLYCOL 3350
     Indication: CONSTIPATION
     Dosage: ?          QUANTITY:3 BOTTLES;OTHER FREQUENCY:3 TIMES;?
     Route: 048
     Dates: start: 20190807, end: 20190820
  2. DIAZEPAM. [Concomitant]
     Active Substance: DIAZEPAM
  3. PEPCID [Concomitant]
     Active Substance: FAMOTIDINE
  4. PRAZOCIN [Concomitant]
     Active Substance: PRAZOSIN HYDROCHLORIDE
  5. HYOCYAMINE [Concomitant]
  6. VITAMIN C [Concomitant]
     Active Substance: ASCORBIC ACID
  7. LEVOTHYROXINE. [Concomitant]
     Active Substance: LEVOTHYROXINE
  8. POTASSIUM CHLORIDE. [Concomitant]
     Active Substance: POTASSIUM CHLORIDE
  9. PROBIOTIC [Concomitant]
     Active Substance: PROBIOTICS NOS
  10. LOSARTAN. [Concomitant]
     Active Substance: LOSARTAN
  11. FLUTICASONE. [Concomitant]
     Active Substance: FLUTICASONE
  12. HYDROCORTISONE CREAM [Concomitant]
     Active Substance: HYDROCORTISONE
  13. BENADRYL [Concomitant]
     Active Substance: DIPHENHYDRAMINE HYDROCHLORIDE
  14. B2 [Concomitant]
  15. SPIRONOLACTONE. [Concomitant]
     Active Substance: SPIRONOLACTONE
  16. MONTELUKAST [Concomitant]
     Active Substance: MONTELUKAST SODIUM
  17. FERRATE [Concomitant]
  18. B12 AND FOLATE [Concomitant]
  19. MAGNESIUM CITRATE. [Concomitant]
     Active Substance: MAGNESIUM CITRATE
  20. PHENOBARBITAL. [Concomitant]
     Active Substance: PHENOBARBITAL
  21. HCTZ [Concomitant]
     Active Substance: HYDROCHLOROTHIAZIDE
  22. MUPIROCIN. [Concomitant]
     Active Substance: MUPIROCIN
  23. CARAT CREAM [Concomitant]
  24. OMEGA 3 [Concomitant]
     Active Substance: OMEGA-3 FATTY ACIDS
  25. VITAMIN D3 [Concomitant]
     Active Substance: CHOLECALCIFEROL
  26. RA BISACODYL [Concomitant]
  27. FLAX [Concomitant]
  28. AIMOVIG [Concomitant]
     Active Substance: ERENUMAB-AOOE
  29. CETIRIZINE [Concomitant]
     Active Substance: CETIRIZINE HYDROCHLORIDE
  30. AZELASTINE. [Concomitant]
     Active Substance: AZELASTINE HYDROCHLORIDE
  31. TYLENOL WITH CODEINE [Concomitant]
     Active Substance: ACETAMINOPHEN\CODEINE PHOSPHATE
  32. MAGNESIUM GLYCINATE [Concomitant]
     Active Substance: MAGNESIUM GLYCINATE
  33. VENTOLIN [Concomitant]
     Active Substance: ALBUTEROL SULFATE
  34. CLOTRIMAZOLE BETAMETHASONE [Concomitant]
  35. ARABIC GUM [Concomitant]
     Active Substance: ACACIA

REACTIONS (4)
  - Asthenia [None]
  - Joint swelling [None]
  - Vomiting [None]
  - Dysstasia [None]

NARRATIVE: CASE EVENT DATE: 20190807
